FAERS Safety Report 7803454-3 (Version None)
Quarter: 2011Q4

REPORT INFORMATION
  Report Type: 
  Country: None (occurrence: None)
  Receive Date: 20111007
  Receipt Date: 20110927
  Transmission Date: 20120403
  Serious: Yes (Other)
  Sender: FDA-Public Use
  Company Number: US-ALLERGAN-1112837US

PATIENT
  Sex: Female

DRUGS (1)
  1. BOTOX COSMETIC [Suspect]
     Indication: SKIN WRINKLING
     Dosage: UNK
     Dates: start: 20110826, end: 20110826

REACTIONS (4)
  - MUSCULAR WEAKNESS [None]
  - ILEUS PARALYTIC [None]
  - EYELID PTOSIS [None]
  - URINARY INCONTINENCE [None]
